FAERS Safety Report 6318865-5 (Version None)
Quarter: 2009Q3

REPORT INFORMATION
  Report Type: 
  Country: None (occurrence: None)
  Receive Date: 20090821
  Receipt Date: 20090813
  Transmission Date: 20100115
  Serious: Yes (Hospitalization)
  Sender: FDA-Public Use
  Company Number: CA-ELI_LILLY_AND_COMPANY-CA200908003201

PATIENT
  Age: 74 Year
  Sex: Female

DRUGS (9)
  1. FORTEO [Suspect]
     Indication: OSTEOPOROSIS
     Dosage: 20 UG, DAILY (1/D)
     Dates: start: 20081208
  2. LASIX [Concomitant]
  3. GABAPENTIN [Concomitant]
  4. ARTHROTEC [Concomitant]
  5. VERAPAMIL [Concomitant]
  6. OXYBUTYNIN [Concomitant]
  7. PARIET [Concomitant]
  8. CALCIUM                                 /N/A/ [Concomitant]
  9. FENTANYL [Concomitant]
     Route: 023

REACTIONS (1)
  - HIP ARTHROPLASTY [None]
